FAERS Safety Report 10042994 (Version 1)
Quarter: 2014Q1

REPORT INFORMATION
  Report Type: Spontaneous
  Country: US (occurrence: US)
  Receive Date: 20140328
  Receipt Date: 20140328
  Transmission Date: 20141002
  Serious: No
  Sender: FDA-Public Use
  Company Number: US-009507513-1403USA012997

PATIENT
  Age: 17 Year
  Sex: Female
  Weight: 70.3 kg

DRUGS (1)
  1. IMPLANON [Suspect]
     Indication: CONTRACEPTION
     Dosage: EVERY THREE YEARS
     Route: 059
     Dates: start: 20120821

REACTIONS (2)
  - Menometrorrhagia [Unknown]
  - Device dislocation [Unknown]
